FAERS Safety Report 6286864-8 (Version None)
Quarter: 2009Q3

REPORT INFORMATION
  Report Type: 
  Country: None (occurrence: None)
  Receive Date: 20090728
  Receipt Date: 20090724
  Transmission Date: 20100115
  Serious: Yes (Disabling, Other)
  Sender: FDA-Public Use
  Company Number: US-MERCK-0907USA04215

PATIENT
  Age: 49 Year
  Sex: Female
  Weight: 68 kg

DRUGS (6)
  1. JANUVIA [Suspect]
     Indication: GLUCOSE TOLERANCE IMPAIRED
     Route: 048
     Dates: start: 20081001, end: 20090201
  2. METFORMIN HYDROCHLORIDE [Concomitant]
     Indication: GLUCOSE TOLERANCE IMPAIRED
     Route: 048
     Dates: start: 20050101
  3. ADVAIR HFA [Concomitant]
     Indication: ASTHMA
     Route: 048
     Dates: start: 20020101
  4. SPIRIVA [Concomitant]
     Indication: ASTHMA
     Route: 048
     Dates: start: 20020101
  5. ALBUTEROL [Concomitant]
     Indication: ASTHMA
     Route: 048
  6. CRESTOR [Concomitant]
     Indication: DYSLIPIDAEMIA
     Route: 048
     Dates: start: 20060101

REACTIONS (3)
  - DYSPNOEA [None]
  - PULMONARY FUNCTION TEST DECREASED [None]
  - WHEEZING [None]
